FAERS Safety Report 9563643 (Version 1)
Quarter: 2013Q3

REPORT INFORMATION
  Report Type: Spontaneous
  Country: US (occurrence: None)
  Receive Date: 20130926
  Receipt Date: 20130926
  Transmission Date: 20140515
  Serious: No
  Sender: FDA-Public Use
  Company Number: None

PATIENT
  Age: 67 Year
  Sex: Male
  Weight: 86.5 kg

DRUGS (1)
  1. DOXAZOSIN [Suspect]
     Indication: PROSTATIC DISORDER
     Route: 048
     Dates: start: 20091018, end: 20111025

REACTIONS (5)
  - Headache [None]
  - Back pain [None]
  - Asthenia [None]
  - Myalgia [None]
  - Dizziness [None]
